FAERS Safety Report 7223040-6 (Version None)
Quarter: 2011Q1

REPORT INFORMATION
  Report Type: 
  Country: None (occurrence: None)
  Receive Date: 20110112
  Receipt Date: 20110110
  Transmission Date: 20110831
  Serious: Yes (Other)
  Sender: FDA-Public Use
  Company Number: US-AMGEN-QUU403683

PATIENT

DRUGS (7)
  1. METHOTREXATE [Concomitant]
     Dosage: 20 MG, QWK
     Route: 048
  2. ENBREL [Suspect]
     Indication: RHEUMATOID ARTHRITIS
     Dosage: 50 MG, QWK
     Route: 058
     Dates: start: 20100319, end: 20100401
  3. PLAQUENIL [Concomitant]
     Dosage: UNK
     Dates: start: 20100301, end: 20100301
  4. PREDNISONE [Concomitant]
     Dosage: UNK
     Dates: start: 20010901
  5. PROTONIX [Concomitant]
     Dosage: UNK
  6. FLORINEF [Concomitant]
     Dosage: UNK
  7. SYNTHROID [Concomitant]
     Dosage: UNK

REACTIONS (10)
  - VISION BLURRED [None]
  - CONJUNCTIVAL OEDEMA [None]
  - INJECTION SITE RASH [None]
  - EYE IRRITATION [None]
  - INJECTION SITE ERYTHEMA [None]
  - INJECTION SITE WARMTH [None]
  - SWELLING FACE [None]
  - INJECTION SITE PRURITUS [None]
  - INJECTION SITE PAIN [None]
  - EYE SWELLING [None]
